FAERS Safety Report 14779829 (Version 1)
Quarter: 2018Q2

REPORT INFORMATION
  Report Type: Spontaneous
  Country: FR (occurrence: FR)
  Receive Date: 20180419
  Receipt Date: 20180419
  Transmission Date: 20180711
  Serious: Yes (Other)
  Sender: FDA-Public Use
  Company Number: FR-TEVA-2018-FR-883845

PATIENT
  Age: 78 Year
  Sex: Female

DRUGS (7)
  1. AIROMIR [Concomitant]
     Active Substance: ALBUTEROL SULFATE
     Indication: PRODUCT USED FOR UNKNOWN INDICATION
     Route: 065
  2. SPIRIVA [Concomitant]
     Active Substance: TIOTROPIUM BROMIDE MONOHYDRATE
     Route: 065
  3. DUORESP SPIROMAX [Concomitant]
     Active Substance: BUDESONIDE\FORMOTEROL
     Route: 065
  4. MONTELUKAST [Suspect]
     Active Substance: MONTELUKAST SODIUM
     Indication: ASTHMA
     Dosage: UNK
  5. AIROMIR [Concomitant]
     Active Substance: ALBUTEROL SULFATE
     Route: 065
  6. SINGULAIR [Suspect]
     Active Substance: MONTELUKAST SODIUM
     Indication: ASTHMA
     Dosage: UNK
     Route: 048
  7. BILASKA [Concomitant]
     Active Substance: BILASTINE
     Route: 065

REACTIONS (9)
  - Drug hypersensitivity [Unknown]
  - Type 2 diabetes mellitus [Unknown]
  - Oedema [Unknown]
  - Cardiac pacemaker insertion [Unknown]
  - Cardiac disorder [Unknown]
  - Lung infection [Unknown]
  - Localised oedema [Unknown]
  - Drug dispensing error [Unknown]
  - Lactose intolerance [Unknown]
